FAERS Safety Report 7988648-9 (Version None)
Quarter: 2011Q4

REPORT INFORMATION
  Report Type: 
  Country: None (occurrence: None)
  Receive Date: 20111218
  Receipt Date: 20111207
  Transmission Date: 20120403
  Serious: Yes (Other)
  Sender: FDA-Public Use
  Company Number: US-ASTRAZENECA-2011SE74382

PATIENT
  Sex: Female
  Weight: 50.6 kg

DRUGS (12)
  1. CHANTIX [Concomitant]
     Route: 048
  2. CHANTIX [Concomitant]
     Route: 048
  3. CHOLECALCIFEROL [Concomitant]
     Route: 048
  4. ZESTRIL [Suspect]
     Route: 048
  5. METOPROLOL SUCCINATE [Concomitant]
     Route: 048
  6. ZESTRIL [Suspect]
     Route: 048
  7. CHANTIX [Concomitant]
     Route: 048
  8. CYANOCOBALAMIN [Concomitant]
     Route: 048
  9. MEPHENYTOIN [Concomitant]
     Route: 048
  10. LEVOTHYROXINE SODIUM [Concomitant]
     Route: 048
  11. FOLIC ACID [Concomitant]
     Route: 048
  12. PHENAZOPYRADINE HCL [Concomitant]
     Route: 048

REACTIONS (7)
  - HEADACHE [None]
  - FATIGUE [None]
  - ESSENTIAL HYPERTENSION [None]
  - NERVOUSNESS [None]
  - MIDDLE INSOMNIA [None]
  - CACHEXIA [None]
  - HYPERTHYROIDISM [None]
